FAERS Safety Report 4662127-9 (Version None)
Quarter: 2005Q2

REPORT INFORMATION
  Report Type: 
  Country: None (occurrence: None)
  Receive Date: 20050512
  Receipt Date: 20050506
  Transmission Date: 20051028
  Serious: Yes (Other)
  Sender: FDA-Public Use
  Company Number: 2005049027

PATIENT
  Age: 62 Year
  Sex: Female
  Weight: 81.6475 kg

DRUGS (2)
  1. LIPITOR [Suspect]
     Indication: BLOOD CHOLESTEROL INCREASED
     Dosage: 10 MG (10 MG, 1 IN 1 D), ORAL
     Route: 048
     Dates: start: 20020101
  2. VENLAFAXINE HCL [Concomitant]

REACTIONS (5)
  - ANXIETY [None]
  - CONDITION AGGRAVATED [None]
  - HAEMORRHAGE INTRACRANIAL [None]
  - INTRACRANIAL ANEURYSM [None]
  - POST PROCEDURAL COMPLICATION [None]
